FAERS Safety Report 5654642-6 (Version None)
Quarter: 2008Q1

REPORT INFORMATION
  Report Type: 
  Country: None (occurrence: None)
  Receive Date: 20080307
  Receipt Date: 20080229
  Transmission Date: 20080703
  Serious: Yes (Death)
  Sender: FDA-Public Use
  Company Number: CA-SOLVAY-00308000574

PATIENT
  Age: 24143 Day
  Sex: Male

DRUGS (24)
  1. AMIODARONE HCL [Concomitant]
     Indication: CARDIAC DISORDER
     Dosage: DAILY DOSE: 200 MILLIGRAM(S)
     Route: 048
     Dates: end: 20080203
  2. MARINOL [Suspect]
     Indication: DECREASED APPETITE
     Dosage: DAILY DOSE: 2.5 MILLIGRAM(S)
     Route: 048
     Dates: start: 20080116, end: 20080118
  3. ASPIRIN [Suspect]
     Indication: ILL-DEFINED DISORDER
     Dosage: DAILY DOSE: 325 MILLIGRAM(S)
     Route: 048
     Dates: end: 20080203
  4. ANDROGEL [Concomitant]
     Indication: ILL-DEFINED DISORDER
     Dosage: DAILY DOSE: 5 GRAM(S)
     Route: 062
     Dates: start: 20070507, end: 20080203
  5. HYDROMORPHONE HCL [Suspect]
     Indication: PAIN
     Dosage: DAILY DOSE: 60 MILLIGRAM(S); AS USED: 12 MG
     Route: 048
     Dates: start: 20071227, end: 20080203
  6. COTAZYM 65B [Concomitant]
     Indication: GASTROINTESTINAL DISORDER
     Dosage: DAILY DOSE: 3 TABLETS
     Route: 048
     Dates: end: 20080203
  7. LACTULOSE [Suspect]
     Indication: CONSTIPATION
     Dosage: DAILY DOSE: 15-30 ML AS NEEDED
     Route: 048
     Dates: start: 20071115, end: 20080203
  8. DOCUSATE [Concomitant]
     Indication: CONSTIPATION
     Dosage: DAILY DOSE: 600 MILLIGRAM(S)
     Route: 048
     Dates: start: 20080107, end: 20080203
  9. LIPITOR [Concomitant]
     Indication: HYPERCHOLESTEROLAEMIA
     Dosage: DAILY DOSE: 20 MILLIGRAM(S)
     Route: 048
     Dates: start: 20070817, end: 20080203
  10. METHYLPHENIDATE HCL [Concomitant]
     Indication: DEPRESSION
     Dosage: DAILY DOSE: 20 MILLIGRAM, 4 TABLETS DAILY
     Route: 048
     Dates: start: 20080128, end: 20080203
  11. METOCLOPRAMIDE [Concomitant]
     Indication: NAUSEA
     Dosage: DAILY DOSE: 40 MILLIGRAM(S); ONE TABLET 20-30 MINUTES BEFORE EACH MEAL AND ONE AT BEDTIME
     Route: 048
     Dates: start: 20080107, end: 20080203
  12. METOPROLOL TARTRATE [Concomitant]
     Indication: ILL-DEFINED DISORDER
     Dosage: DAILY DOSE: 50 MILLIGRAM(S)
     Route: 048
     Dates: start: 20080101, end: 20080203
  13. MICARDIS [Concomitant]
     Indication: ILL-DEFINED DISORDER
     Dosage: DAILY DOSE: 80 MILLIGRAM(S)
     Route: 048
     Dates: start: 20080107, end: 20080203
  14. MS CONTIN [Concomitant]
     Indication: ILL-DEFINED DISORDER
     Dosage: 3 TABLETS 'Q12II'
     Route: 048
     Dates: start: 20080128, end: 20080203
  15. NASONEX [Concomitant]
     Indication: ILL-DEFINED DISORDER
     Dosage: 1 SPRAY EACH SIDE ONCE DAILY
     Route: 045
     Dates: start: 20070507, end: 20080203
  16. NITRO-DUR [Concomitant]
     Indication: ILL-DEFINED DISORDER
     Dosage: DAILY DOSE:  UNKNOWN
     Route: 062
     Dates: start: 20071231, end: 20080203
  17. NITROGLYCERINE AEROSOL [Concomitant]
     Indication: ILL-DEFINED DISORDER
     Dosage: 1 SPRAY AS NEEDED, MAY REPEAT SPRAY AFTER 3 MINUTES TO MAX. 3 SPRAYS
     Route: 060
     Dates: start: 20071231, end: 20080203
  18. NORVASC [Concomitant]
     Indication: ILL-DEFINED DISORDER
     Dosage: DAILY DOSE: 5 MILLIGRAM(S)
     Route: 048
     Dates: start: 20080107, end: 20080203
  19. PANTOPRAZOLE SODIUM [Concomitant]
     Indication: ILL-DEFINED DISORDER
     Dosage: DAILY DOSE: 40 MICROGRAM(S)
     Route: 048
     Dates: start: 20070912, end: 20080203
  20. PLAVIX [Concomitant]
     Indication: ILL-DEFINED DISORDER
     Dosage: DAILY DOSE:  UNKNOWN
     Route: 048
     Dates: start: 20080107, end: 20080203
  21. PREXICE [Concomitant]
     Indication: ILL-DEFINED DISORDER
     Dosage: DAILY DOSE: 100 MILLIGRAM(S)
     Route: 048
     Dates: start: 20070817, end: 20080203
  22. PROCTOSEDYL SUPPOSITORY [Concomitant]
     Indication: HAEMORRHOIDS
     Dosage: AS NEEDED
     Route: 054
     Dates: start: 20080129, end: 20080203
  23. SENOKOT [Concomitant]
     Indication: ILL-DEFINED DISORDER
     Dosage: DAILY DOSE:  UNKNOWN
     Route: 048
     Dates: start: 20080107, end: 20080203
  24. STATEX [Concomitant]
     Indication: BREAKTHROUGH PAIN
     Dosage: 4 TABLETS'QLH' AS NEEDED
     Route: 048
     Dates: start: 20080114, end: 20080203

REACTIONS (3)
  - DEATH [None]
  - NAUSEA [None]
  - VOMITING [None]
